FAERS Safety Report 7042526-0 (Version None)
Quarter: 2010Q4

REPORT INFORMATION
  Report Type: 
  Country: None (occurrence: None)
  Receive Date: 20101013
  Receipt Date: 20100114
  Transmission Date: 20110411
  Serious: Yes (Other)
  Sender: FDA-Public Use
  Company Number: US-ASTRAZENECA-2009SE33556

PATIENT
  Age: 63 Year
  Sex: Female
  Weight: 76.7 kg

DRUGS (2)
  1. SYMBICORT [Suspect]
     Route: 055
  2. ACE INHIBITOR [Concomitant]

REACTIONS (1)
  - ANGIOEDEMA [None]
